FAERS Safety Report 4744262-X (Version None)
Quarter: 2005Q3

REPORT INFORMATION
  Report Type: 
  Country: None (occurrence: None)
  Receive Date: 20050809
  Receipt Date: 20050801
  Transmission Date: 20060218
  Serious: Yes (Hospitalization, Disabling, Other)
  Sender: FDA-Public Use
  Company Number: 2005EU001198

PATIENT
  Age: 3 Year
  Sex: Male
  Weight: 18 kg

DRUGS (5)
  1. PROTOPIC [Suspect]
     Indication: NEURODERMATITIS
     Dosage: SEE IMAGE
     Route: 061
     Dates: end: 20040101
  2. PROTOPIC [Suspect]
     Indication: NEURODERMATITIS
     Dosage: SEE IMAGE
     Route: 061
     Dates: start: 20021001
  3. PREMANDOL (PREDNISOLONE ACETATE, ZINC OXIDE) [Concomitant]
  4. EMOLLIENTS AND PROTECTIVES [Concomitant]
  5. DERM-AID CREAM (HYDROCORTISONE) [Concomitant]

REACTIONS (7)
  - AUTOIMMUNE DISORDER [None]
  - DIABETES MELLITUS INSULIN-DEPENDENT [None]
  - ECZEMA [None]
  - GASTROINTESTINAL DISORDER [None]
  - GLYCOSYLATED HAEMOGLOBIN INCREASED [None]
  - HYPERGLYCAEMIA [None]
  - INFLUENZA [None]
